FAERS Safety Report 4878960-4 (Version None)
Quarter: 2006Q1

REPORT INFORMATION
  Report Type: 
  Country: None (occurrence: None)
  Receive Date: 20060110
  Receipt Date: 20060110
  Transmission Date: 20060701
  Serious: Yes (Other)
  Sender: FDA-Public Use
  Company Number: None

PATIENT
  Sex: Female
  Weight: 59.5 kg

DRUGS (3)
  1. CYCLOPHOSPHAMIDE [Suspect]
     Indication: BREAST CANCER
     Dosage: SEE IMAGE
     Route: 042
     Dates: start: 20051206
  2. TAXOTERE [Suspect]
     Dosage: SEE IMAGE
     Route: 042
     Dates: start: 20051206
  3. DOXORUBICIN [Suspect]
     Dosage: SEE IMAGE
     Route: 042
     Dates: start: 20051206

REACTIONS (7)
  - EYE SWELLING [None]
  - EYELID OEDEMA [None]
  - FATIGUE [None]
  - IMPAIRED WORK ABILITY [None]
  - LACRIMATION INCREASED [None]
  - NEUROPATHY PERIPHERAL [None]
  - VISION BLURRED [None]
